FAERS Safety Report 19401555 (Version 1)
Quarter: 2021Q2

REPORT INFORMATION
  Report Type: Spontaneous
  Country: FR (occurrence: FR)
  Receive Date: 20210611
  Receipt Date: 20210611
  Transmission Date: 20210717
  Serious: Yes (Death, Other)
  Sender: FDA-Public Use
  Company Number: FR-MACLEODS PHARMACEUTICALS US LTD-MAC2021031443

PATIENT

DRUGS (10)
  1. VALGANCICLOVIR. [Suspect]
     Active Substance: VALGANCICLOVIR
     Indication: CYTOMEGALOVIRUS CHORIORETINITIS
     Dosage: 450 MILLIGRAM, 14.5 MG/KG) EVERY 2 DAYS (EVEN DATES)
     Route: 065
  2. ACYCLOVIR. [Suspect]
     Active Substance: ACYCLOVIR
     Indication: MENINGOENCEPHALITIS HERPETIC
     Dosage: 200 MILLIGRAM, TID
     Route: 065
  3. AMPHOTERICIN B. [Concomitant]
     Active Substance: AMPHOTERICIN B
     Indication: PRODUCT USED FOR UNKNOWN INDICATION
     Dosage: UNK, LIPOSOMAL
     Route: 065
  4. VORICONAZOLE. [Concomitant]
     Active Substance: VORICONAZOLE
     Indication: BRONCHOPULMONARY ASPERGILLOSIS
     Dosage: UNK
     Route: 065
  5. VALGANCICLOVIR. [Suspect]
     Active Substance: VALGANCICLOVIR
     Dosage: 1 DOSAGE FORM, INCREASED TO ONE TABLET (14.5 MG/KG) TWICE A WEEK
     Route: 065
  6. CASPOFUNGIN [Concomitant]
     Active Substance: CASPOFUNGIN
     Indication: BRONCHOPULMONARY ASPERGILLOSIS
     Dosage: UNK
     Route: 065
  7. FUROSEMIDE. [Concomitant]
     Active Substance: FUROSEMIDE
     Indication: PRODUCT USED FOR UNKNOWN INDICATION
     Dosage: UNK
     Route: 065
  8. VALGANCICLOVIR. [Suspect]
     Active Substance: VALGANCICLOVIR
     Dosage: 0.5 DOSAGE FORM, HALF A TABLET (7.25 MG/KG) TWICE WEEKLY
     Route: 065
  9. OMEPRAZOLE. [Concomitant]
     Active Substance: OMEPRAZOLE
     Indication: PRODUCT USED FOR UNKNOWN INDICATION
     Dosage: UNK
     Route: 065
  10. ACETAMINOPHEN. [Concomitant]
     Active Substance: ACETAMINOPHEN
     Indication: PRODUCT USED FOR UNKNOWN INDICATION
     Dosage: UNK
     Route: 065

REACTIONS (5)
  - Acute lymphocytic leukaemia [Fatal]
  - Overdose [Unknown]
  - Neurotoxicity [Recovered/Resolved]
  - Renal failure [Fatal]
  - Hyperglycaemia [Unknown]
